FAERS Safety Report 5950310-1 (Version None)
Quarter: 2008Q4

REPORT INFORMATION
  Report Type: 
  Country: None (occurrence: None)
  Receive Date: 20081112
  Receipt Date: 20081103
  Transmission Date: 20090506
  Serious: Yes (Death, Other)
  Sender: FDA-Public Use
  Company Number: PHHY2008BR27008

PATIENT
  Age: 80 Year
  Sex: Male

DRUGS (1)
  1. STARFORM [Suspect]
     Dosage: 120/500 MG
     Route: 048

REACTIONS (4)
  - CEREBROVASCULAR ACCIDENT [None]
  - COMA [None]
  - DEATH [None]
  - MULTI-ORGAN FAILURE [None]
